FAERS Safety Report 15821040 (Version 1)
Quarter: 2019Q1

REPORT INFORMATION
  Report Type: Spontaneous
  Country: IE (occurrence: IE)
  Receive Date: 20190114
  Receipt Date: 20190114
  Transmission Date: 20190417
  Serious: Yes (Hospitalization)
  Sender: FDA-Public Use
  Company Number: IE-GLAXOSMITHKLINE-IE2019002188

PATIENT
  Age: 82 Year
  Sex: Female

DRUGS (2)
  1. WARFARIN [Concomitant]
     Active Substance: WARFARIN
     Indication: PRODUCT USED FOR UNKNOWN INDICATION
     Dosage: UNK
     Route: 065
  2. CEFUROXIM [Suspect]
     Active Substance: CEFUROXIME
     Indication: CELLULITIS
     Dosage: 2 G, UNK
     Route: 042
     Dates: start: 20181204, end: 20181205

REACTIONS (11)
  - Oedema [Recovered/Resolved]
  - Pyrexia [Recovered/Resolved]
  - Dry mouth [Recovered/Resolved]
  - Heart sounds abnormal [Recovered/Resolved]
  - Diarrhoea [Recovered/Resolved]
  - Abdominal pain [Recovered/Resolved]
  - Abdominal discomfort [Recovered/Resolved]
  - Gait disturbance [Recovered/Resolved]
  - Dizziness [Recovered/Resolved]
  - Vomiting [Recovered/Resolved]
  - Lethargy [Recovered/Resolved]

NARRATIVE: CASE EVENT DATE: 20181205
